FAERS Safety Report 10709591 (Version 1)
Quarter: 2015Q1

REPORT INFORMATION
  Report Type: Spontaneous
  Country: US (occurrence: None)
  Receive Date: 20150113
  Receipt Date: 20150113
  Transmission Date: 20150721
  Serious: No
  Sender: FDA-Public Use
  Company Number: None

PATIENT

DRUGS (1)
  1. PLAVIX [Suspect]
     Active Substance: CLOPIDOGREL BISULFATE

REACTIONS (5)
  - Drug prescribing error [None]
  - Contraindicated drug administered [None]
  - Pneumonia [None]
  - Prescription form tampering [None]
  - Drug dispensing error [None]

NARRATIVE: CASE EVENT DATE: 20141222
